FAERS Safety Report 9217364 (Version 1)
Quarter: 2013Q2

REPORT INFORMATION
  Report Type: Spontaneous
  Country: DK (occurrence: DK)
  Receive Date: 20130408
  Receipt Date: 20130408
  Transmission Date: 20140414
  Serious: Yes (Death, Life-Threatening, Hospitalization)
  Sender: FDA-Public Use
  Company Number: DK-ROCHE-1205984

PATIENT
  Age: 79 Year
  Sex: Male
  Weight: 80 kg

DRUGS (2)
  1. ACTILYSE [Suspect]
     Indication: CEREBRAL INFARCTION
     Route: 042
     Dates: start: 20100624
  2. ACTILYSE [Suspect]
     Indication: CEREBROVASCULAR ACCIDENT

REACTIONS (2)
  - Brain death [Fatal]
  - Cerebral haemorrhage [Fatal]
